FAERS Safety Report 17219108 (Version 1)
Quarter: 2019Q4

REPORT INFORMATION
  Report Type: Spontaneous
  Country: DE (occurrence: DE)
  Receive Date: 20191231
  Receipt Date: 20191231
  Transmission Date: 20200122
  Serious: Yes (Other)
  Sender: FDA-Public Use
  Company Number: DE-BAXTER-2019BAX026794

PATIENT
  Sex: Male
  Weight: 103 kg

DRUGS (13)
  1. DEXAMETHASONE. [Suspect]
     Active Substance: DEXAMETHASONE
     Indication: DIFFUSE LARGE B-CELL LYMPHOMA
     Dosage: FURTHER LINES, R-GDP, 6 CYCLES
     Route: 065
     Dates: start: 201903, end: 201907
  2. CISPLATIN. [Suspect]
     Active Substance: CISPLATIN
     Indication: DIFFUSE LARGE B-CELL LYMPHOMA
     Dosage: FURTHER LINES, R-GDP, 6 CYCLES
     Route: 065
     Dates: start: 201903, end: 201907
  3. ENDOXAN 1G [Suspect]
     Active Substance: CYCLOPHOSPHAMIDE
     Indication: DIFFUSE LARGE B-CELL LYMPHOMA
     Dosage: 1ST LINE, CHOP, 6 CYCLES AND THEN 2 CYCLES OF RITUXIMAB
     Route: 065
     Dates: start: 201501, end: 201504
  4. DEXAMETHASONE. [Suspect]
     Active Substance: DEXAMETHASONE
     Dosage: 2ND LINE, DHAC, 4 CYCLES
     Route: 065
     Dates: start: 201603, end: 201606
  5. DOXIL [Suspect]
     Active Substance: DOXORUBICIN HYDROCHLORIDE
     Indication: DIFFUSE LARGE B-CELL LYMPHOMA
     Dosage: 1ST LINE, CHOP, 6 CYCLES AND THEN 2 CYCLES OF RITUXIMAB
     Route: 065
     Dates: start: 201501, end: 201504
  6. RITUXIMAB. [Suspect]
     Active Substance: RITUXIMAB
     Dosage: FURTHER LINES, R-GDP, 6 CYCLES, RADIATION
     Route: 065
     Dates: start: 201903, end: 201907
  7. GEMCITABINE. [Suspect]
     Active Substance: GEMCITABINE
     Indication: DIFFUSE LARGE B-CELL LYMPHOMA
     Dosage: FURTHER LINES, R-GDP, 6 CYCLES
     Route: 065
     Dates: start: 201903, end: 201907
  8. RITUXIMAB. [Suspect]
     Active Substance: RITUXIMAB
     Indication: DIFFUSE LARGE B-CELL LYMPHOMA
     Dosage: 2ND LINE, DHAC, 4 CYCLES
     Route: 065
     Dates: start: 201603, end: 201606
  9. VINCRISTINE [Suspect]
     Active Substance: VINCRISTINE
     Indication: DIFFUSE LARGE B-CELL LYMPHOMA
     Dosage: 1ST LINE, CHOP, 6 CYCLES AND THEN 2 CYCLES OF RITUXIMAB
     Route: 065
     Dates: start: 201501, end: 201504
  10. CYTARABINE. [Suspect]
     Active Substance: CYTARABINE
     Indication: DIFFUSE LARGE B-CELL LYMPHOMA
     Dosage: 2ND LINE, DHAC, 4 CYCLES
     Route: 065
     Dates: start: 201603, end: 201606
  11. RITUXIMAB. [Suspect]
     Active Substance: RITUXIMAB
     Dosage: 1ST LINE, CHOP, 6 CYCLES AND THEN 2 CYCLES OF RITUXIMAB
     Route: 065
     Dates: start: 201501, end: 201504
  12. PREDNISONE. [Suspect]
     Active Substance: PREDNISONE
     Indication: DIFFUSE LARGE B-CELL LYMPHOMA
     Dosage: 1ST LINE, CHOP, 6 CYCLES AND THEN 2 CYCLES OF RITUXIMAB
     Route: 065
     Dates: start: 201501, end: 201504
  13. CARBOPLATIN. [Suspect]
     Active Substance: CARBOPLATIN
     Indication: DIFFUSE LARGE B-CELL LYMPHOMA
     Dosage: 2ND LINE, DHAC, 4 CYCLES
     Route: 065
     Dates: start: 201603, end: 201606

REACTIONS (1)
  - Neuropathy peripheral [Unknown]
